FAERS Safety Report 11171819 (Version 1)
Quarter: 2015Q2

REPORT INFORMATION
  Report Type: Spontaneous
  Country: FR (occurrence: FR)
  Receive Date: 20150608
  Receipt Date: 20150608
  Transmission Date: 20150821
  Serious: Yes (Hospitalization)
  Sender: FDA-Public Use
  Company Number: FR-SA-2015SA078254

PATIENT
  Age: 69 Year
  Sex: Male

DRUGS (13)
  1. TRIATEC [Suspect]
     Active Substance: RAMIPRIL
     Route: 065
  2. TICLID [Suspect]
     Active Substance: TICLOPIDINE HYDROCHLORIDE
     Route: 048
     Dates: start: 20150121, end: 20150320
  3. PLAVIX [Suspect]
     Active Substance: CLOPIDOGREL BISULFATE
     Route: 048
     Dates: start: 20150320
  4. KARDEGIC [Suspect]
     Active Substance: ASPIRIN LYSINE
     Route: 048
  5. ROVAMYCINE [Suspect]
     Active Substance: SPIRAMYCIN
     Route: 065
     Dates: start: 20150320, end: 20150320
  6. SOTALEX [Suspect]
     Active Substance: SOTALOL
     Route: 065
  7. ROCEPHIN [Suspect]
     Active Substance: CEFTRIAXONE SODIUM
     Route: 042
     Dates: start: 20150318
  8. AUGMENTIN [Suspect]
     Active Substance: AMOXICILLIN\CLAVULANATE POTASSIUM
     Route: 042
     Dates: start: 20150320, end: 20150323
  9. JANUVIA [Suspect]
     Active Substance: SITAGLIPTIN PHOSPHATE
     Route: 048
     Dates: end: 20150323
  10. OFLOCET [Suspect]
     Active Substance: OFLOXACIN
     Route: 042
     Dates: start: 20150320, end: 20150320
  11. DIAMICRON [Suspect]
     Active Substance: GLICLAZIDE
     Dosage: FORM:MODIFIED RELEASE DIVISIBLE TABLET
     Route: 048
  12. DIAMICRON [Suspect]
     Active Substance: GLICLAZIDE
     Route: 065
     Dates: end: 20150323
  13. ROCEPHIN [Suspect]
     Active Substance: CEFTRIAXONE SODIUM
     Route: 042
     Dates: start: 20150320

REACTIONS (2)
  - Cholestasis [Unknown]
  - Hepatocellular injury [Unknown]

NARRATIVE: CASE EVENT DATE: 20150320
